FAERS Safety Report 5225515-8 (Version None)
Quarter: 2007Q1

REPORT INFORMATION
  Report Type: 
  Country: None (occurrence: None)
  Receive Date: 20070131
  Receipt Date: 20070119
  Transmission Date: 20070707
  Serious: Yes (Other)
  Sender: FDA-Public Use
  Company Number: FR-PFIZER INC-2007005857

PATIENT

DRUGS (1)
  1. ZYVOX [Suspect]
     Indication: MYCOBACTERIUM AVIUM COMPLEX INFECTION

REACTIONS (1)
  - SCOTOMA [None]
